FAERS Safety Report 5456068-7 (Version None)
Quarter: 2007Q3

REPORT INFORMATION
  Report Type: 
  Country: None (occurrence: None)
  Receive Date: 20070918
  Receipt Date: 20070330
  Transmission Date: 20080115
  Serious: Yes (Other)
  Sender: FDA-Public Use
  Company Number: US-ASTRAZENECA-2006UW23993

PATIENT
  Age: 18430 Day
  Sex: Female
  Weight: 60 kg

DRUGS (2)
  1. SEROQUEL [Suspect]
     Route: 048
     Dates: end: 20030324
  2. ZYPREXA [Concomitant]

REACTIONS (3)
  - DIABETES MELLITUS [None]
  - DIABETIC COMA [None]
  - DIABETIC KETOACIDOSIS [None]
